FAERS Safety Report 9740024 (Version 2)
Quarter: 2013Q4

REPORT INFORMATION
  Report Type: Spontaneous
  Country: US (occurrence: US)
  Receive Date: 20131209
  Receipt Date: 20131209
  Transmission Date: 20140711
  Serious: Yes (Other)
  Sender: FDA-Public Use
  Company Number: US-MYLANLABS-2013S1025172

PATIENT
  Age: 67 Year
  Sex: Female
  Weight: 76 kg

DRUGS (3)
  1. AMIODARONE HYDROCHLORIDE INJECTION [Suspect]
     Indication: ATRIAL FIBRILLATION
     Dosage: 0.5MG/MIN 450MG/250ML
     Route: 042
     Dates: start: 20131014, end: 201310
  2. EPINEPHRINE [Concomitant]
  3. DOPAMINE [Concomitant]

REACTIONS (4)
  - Phlebitis [Recovered/Resolved]
  - Infusion site extravasation [Recovered/Resolved]
  - Joint stiffness [Recovered/Resolved]
  - Drug administration error [Recovered/Resolved]
